FAERS Safety Report 14844152 (Version 1)
Quarter: 2018Q2

REPORT INFORMATION
  Report Type: Spontaneous
  Country: GB (occurrence: GB)
  Receive Date: 20180503
  Receipt Date: 20180503
  Transmission Date: 20180711
  Serious: Yes (Life-Threatening, Hospitalization, Other)
  Sender: FDA-Public Use
  Company Number: GB-PFIZER INC-2018178652

PATIENT
  Age: 63 Year
  Sex: Male
  Weight: 115 kg

DRUGS (4)
  1. PREGABALIN. [Suspect]
     Active Substance: PREGABALIN
     Dosage: UNK
     Dates: start: 20180310
  2. CITALOPRAM [Concomitant]
     Active Substance: CITALOPRAM HYDROBROMIDE
     Dosage: 1 DF, 1X/DAY
     Dates: start: 20180131, end: 20180228
  3. LEVETIRACETAM. [Concomitant]
     Active Substance: LEVETIRACETAM
     Dosage: 2 DF, 1X/DAY
     Dates: start: 20171219, end: 20180223
  4. LAMOTRIGINE. [Concomitant]
     Active Substance: LAMOTRIGINE
     Indication: EPILEPSY
     Dosage: INCREASE IN INCREMENTS OF 25MG EACH.
     Dates: start: 20180223

REACTIONS (3)
  - Oedema peripheral [Unknown]
  - Dyspnoea [Unknown]
  - Cardiac failure acute [Recovering/Resolving]

NARRATIVE: CASE EVENT DATE: 20180310
